FAERS Safety Report 10149535 (Version 1)
Quarter: 2014Q2

REPORT INFORMATION
  Report Type: Spontaneous
  Country: GB (occurrence: None)
  Receive Date: 20140430
  Receipt Date: 20140430
  Transmission Date: 20141212
  Serious: Yes (Other)
  Sender: FDA-Public Use
  Company Number: AUR-APL-2014-05085

PATIENT
  Age: 64 Year
  Sex: Female
  Weight: 56 kg

DRUGS (7)
  1. SIMVASTATIN [Suspect]
     Indication: PRODUCT USED FOR UNKNOWN INDICATION
     Dates: start: 20140404
  2. ATORVASTATIN (ATORVASTATIN) [Concomitant]
  3. COCOMADOL (PANADEINE CO) [Concomitant]
  4. DOMPERIDONE (DOMPERIDONE) [Concomitant]
  5. LANSOPRAZOLE (LANSOPRAZOLE) [Concomitant]
  6. PROPANOLOL (PROPANOLOL) [Concomitant]
  7. RISEDRONATE SODIUM (RISEDRONATE SODIUM) [Concomitant]

REACTIONS (2)
  - Headache [None]
  - Flushing [None]
